FAERS Safety Report 6058627-X (Version None)
Quarter: 2009Q1

REPORT INFORMATION
  Report Type: 
  Country: None (occurrence: None)
  Receive Date: 20090130
  Receipt Date: 20090120
  Transmission Date: 20090719
  Serious: Yes (Death)
  Sender: FDA-Public Use
  Company Number: JP-PFIZER INC-2009159016

PATIENT

DRUGS (11)
  1. SUNITINIB MALATE [Suspect]
     Indication: RENAL CELL CARCINOMA
     Dosage: 50 MG, 1X/DAY
     Route: 048
     Dates: start: 20081126, end: 20081208
  2. ACETAMINOPHEN [Concomitant]
     Route: 048
     Dates: start: 20081116, end: 20081209
  3. OXYCONTIN [Concomitant]
     Route: 048
     Dates: start: 20081122, end: 20081209
  4. RIVOTRIL [Concomitant]
     Route: 048
     Dates: start: 20081125, end: 20081201
  5. ZANTAC [Concomitant]
     Route: 048
     Dates: start: 20081127, end: 20081209
  6. DESYREL [Concomitant]
     Route: 048
     Dates: start: 20081201, end: 20081209
  7. MYSLEE [Concomitant]
     Route: 048
     Dates: start: 20081201, end: 20081209
  8. PURSENNID [Concomitant]
     Route: 048
     Dates: start: 20081202, end: 20081209
  9. MYONAL [Concomitant]
     Route: 048
     Dates: start: 20081202, end: 20081209
  10. PREDONINE [Concomitant]
     Route: 048
     Dates: start: 20081204, end: 20081209
  11. FENTANYL [Concomitant]
     Dates: start: 20081210

REACTIONS (1)
  - DEATH [None]
